FAERS Safety Report 24865982 (Version 1)
Quarter: 2025Q1

REPORT INFORMATION
  Report Type: Report from Study
  Country: US (occurrence: US)
  Receive Date: 20250121
  Receipt Date: 20250121
  Transmission Date: 20250409
  Serious: Yes (Other)
  Sender: GILEAD
  Company Number: US-GILEAD-2025-0700611

PATIENT
  Sex: Female

DRUGS (5)
  1. AZTREONAM LYSINE [Suspect]
     Active Substance: AZTREONAM LYSINE
     Indication: Cystic fibrosis
     Dosage: INHALE 1 VIAL (75 MG) THREE TIMES DAILY, 28 DAYS ON 28 DAYS OFF
     Route: 055
  2. REPAGLINIDE [Concomitant]
     Active Substance: REPAGLINIDE
  3. PULMOZYME [Concomitant]
     Active Substance: DORNASE ALFA
  4. PERTZYE [Concomitant]
     Active Substance: PANCRELIPASE AMYLASE\PANCRELIPASE LIPASE\PANCRELIPASE PROTEASE
  5. URSODIOL [Concomitant]
     Active Substance: URSODIOL

REACTIONS (1)
  - Cystic fibrosis [Unknown]
